FAERS Safety Report 25524851 (Version 2)
Quarter: 2025Q3

REPORT INFORMATION
  Report Type: Spontaneous
  Country: US (occurrence: US)
  Receive Date: 20250707
  Receipt Date: 20250723
  Transmission Date: 20251021
  Serious: No
  Sender: BAYER HEALTHCARE PHARMACEUTICALS INC.
  Company Number: US-BAYER-2025A088639

PATIENT
  Age: 76 Year
  Sex: Female
  Weight: 138.32 kg

DRUGS (4)
  1. GADOBUTROL [Suspect]
     Active Substance: GADOBUTROL
     Indication: Magnetic resonance imaging head
     Route: 042
     Dates: start: 20250428, end: 20250428
  2. GADOBUTROL [Suspect]
     Active Substance: GADOBUTROL
     Indication: Cerebrovascular accident
  3. GADOBUTROL [Suspect]
     Active Substance: GADOBUTROL
     Indication: Headache
  4. GADOBUTROL [Suspect]
     Active Substance: GADOBUTROL
     Indication: Cerebral infarction

REACTIONS (2)
  - Rash [Recovered/Resolved]
  - Urticaria [Recovered/Resolved]

NARRATIVE: CASE EVENT DATE: 20250428
